FAERS Safety Report 4919229-9 (Version None)
Quarter: 2006Q1

REPORT INFORMATION
  Report Type: 
  Country: None (occurrence: None)
  Receive Date: 20060113
  Receipt Date: 20051029
  Transmission Date: 20060701
  Serious: No
  Sender: FDA-Public Use
  Company Number: 2005SP003754

PATIENT
  Age: 42 Year
  Sex: Female
  Weight: 99.3377 kg

DRUGS (6)
  1. LUNESTA [Suspect]
     Indication: INSOMNIA
     Dosage: 3 MG; HS; ORAL; SEE IMAGE
     Route: 048
     Dates: start: 20050401, end: 20050601
  2. LUNESTA [Suspect]
     Indication: RESTLESS LEGS SYNDROME
     Dosage: 3 MG; HS; ORAL; SEE IMAGE
     Route: 048
     Dates: start: 20050401, end: 20050601
  3. LUNESTA [Suspect]
     Indication: INSOMNIA
     Dosage: 3 MG; HS; ORAL; SEE IMAGE
     Route: 048
     Dates: start: 20050601, end: 20051001
  4. LUNESTA [Suspect]
     Indication: RESTLESS LEGS SYNDROME
     Dosage: 3 MG; HS; ORAL; SEE IMAGE
     Route: 048
     Dates: start: 20050601, end: 20051001
  5. CYMBALTA [Concomitant]
  6. VALSARTAN [Concomitant]

REACTIONS (2)
  - DRUG INEFFECTIVE [None]
  - MIDDLE INSOMNIA [None]
